FAERS Safety Report 7934827-6 (Version None)
Quarter: 2011Q4

REPORT INFORMATION
  Report Type: 
  Country: None (occurrence: None)
  Receive Date: 20111122
  Receipt Date: 20111114
  Transmission Date: 20120403
  Serious: Yes (Other)
  Sender: FDA-Public Use
  Company Number: CHPA2011CA016087

PATIENT
  Sex: Female

DRUGS (2)
  1. OTRIVIN [Suspect]
     Indication: NASAL CONGESTION
     Dosage: 1 SPRAY EACH NOSTRIL, TID
     Route: 045
  2. NASONEX [Concomitant]
     Indication: DEPENDENCE
     Dosage: UNK, UNK

REACTIONS (4)
  - INCORRECT DRUG ADMINISTRATION DURATION [None]
  - REBOUND EFFECT [None]
  - DEPENDENCE [None]
  - NASAL CONGESTION [None]
